FAERS Safety Report 7866312-4 (Version None)
Quarter: 2011Q4

REPORT INFORMATION
  Report Type: 
  Country: None (occurrence: None)
  Receive Date: 20111028
  Receipt Date: 20110325
  Transmission Date: 20120403
  Serious: No
  Sender: FDA-Public Use
  Company Number: US-MYLANLABS-2011S1006579

PATIENT
  Age: 60 Year
  Sex: Female

DRUGS (1)
  1. DIAZEPAM [Suspect]
     Indication: ANXIETY
     Route: 048
     Dates: start: 20110302

REACTIONS (2)
  - REACTION TO DRUG EXCIPIENTS [None]
  - RASH [None]
